FAERS Safety Report 10997219 (Version 1)
Quarter: 2015Q2

REPORT INFORMATION
  Report Type: Report from Study
  Country: JP (occurrence: JP)
  Receive Date: 20150408
  Receipt Date: 20150408
  Transmission Date: 20150821
  Serious: Yes (Other)
  Sender: FDA-Public Use
  Company Number: JP-ROCHE-1521311

PATIENT
  Age: 58 Year
  Sex: Male
  Weight: 60 kg

DRUGS (5)
  1. LOXONIN [Concomitant]
     Active Substance: LOXOPROFEN SODIUM
     Route: 048
     Dates: start: 20140804
  2. SIMEPREVIR [Suspect]
     Active Substance: SIMEPREVIR
     Indication: CHRONIC HEPATITIS C
     Route: 048
     Dates: start: 20140804, end: 20141027
  3. RIBAVIRIN. [Suspect]
     Active Substance: RIBAVIRIN
     Indication: CHRONIC HEPATITIS C
     Route: 048
     Dates: start: 20140804, end: 20140831
  4. PEG-INTERFERON ALFA 2A [Suspect]
     Active Substance: PEGINTERFERON ALFA-2A
     Indication: CHRONIC HEPATITIS C
     Route: 058
     Dates: start: 20140804, end: 20150113
  5. RIBAVIRIN. [Suspect]
     Active Substance: RIBAVIRIN
     Route: 048
     Dates: start: 20140901, end: 20150119

REACTIONS (5)
  - Red blood cell count decreased [Not Recovered/Not Resolved]
  - Haemolytic anaemia [Not Recovered/Not Resolved]
  - Oral herpes [Recovered/Resolved]
  - White blood cell count decreased [Not Recovered/Not Resolved]
  - Injection site dermatitis [Recovered/Resolved]

NARRATIVE: CASE EVENT DATE: 20140825
